FAERS Safety Report 7571035-5 (Version None)
Quarter: 2011Q2

REPORT INFORMATION
  Report Type: 
  Country: None (occurrence: None)
  Receive Date: 20110624
  Receipt Date: 20110615
  Transmission Date: 20111010
  Serious: Yes (Hospitalization)
  Sender: FDA-Public Use
  Company Number: FR-ROCHE-783223

PATIENT
  Sex: Male

DRUGS (11)
  1. BACTRIM [Concomitant]
     Dates: start: 20101127
  2. PLAQUENIL [Concomitant]
     Dates: start: 20101217
  3. FERROUS SULFATE TAB [Concomitant]
     Dates: start: 20101129
  4. DETENSIEL [Concomitant]
     Dates: start: 20101109
  5. CERTICAN [Suspect]
     Indication: RENAL TRANSPLANT
     Route: 048
     Dates: start: 20101129
  6. MYCOPHENOLATE MEFETIL [Suspect]
     Indication: RENAL TRANSPLANT
     Route: 048
     Dates: start: 20101124
  7. OMEPRAZOLE [Concomitant]
     Dates: start: 20101126
  8. AMLODIPINE [Concomitant]
     Dates: start: 20101128
  9. LASIX [Concomitant]
     Dates: start: 20110112
  10. PREDNISONE [Suspect]
     Indication: RENAL TRANSPLANT
     Route: 048
     Dates: start: 20101201
  11. PREVISCAN [Concomitant]
     Dates: start: 20110405

REACTIONS (1)
  - LUNG DISORDER [None]
